FAERS Safety Report 19099057 (Version 2)
Quarter: 2022Q2

REPORT INFORMATION
  Report Type: Report from Study
  Country: DE (occurrence: DE)
  Receive Date: 20210406
  Receipt Date: 20220602
  Transmission Date: 20220721
  Serious: Yes (Other)
  Sender: FDA-Public Use
  Company Number: DE-ROCHE-2123584

PATIENT
  Age: 43 Year
  Sex: Female

DRUGS (29)
  1. PREGABALIN [Suspect]
     Active Substance: PREGABALIN
     Indication: Product used for unknown indication
     Dosage: UNK
     Route: 065
     Dates: start: 2018, end: 2018
  2. OCREVUS [Suspect]
     Active Substance: OCRELIZUMAB
     Indication: Primary progressive multiple sclerosis
     Dosage: INFUSION, SOLUTION
     Route: 042
     Dates: start: 20180423, end: 2018
  3. OCREVUS [Suspect]
     Active Substance: OCRELIZUMAB
     Dosage: INFUSION, SOLUTION
     Route: 042
     Dates: start: 20181023
  4. OCREVUS [Suspect]
     Active Substance: OCRELIZUMAB
     Dosage: INFUSION, SOLUTION
     Route: 042
     Dates: start: 20190426
  5. OCREVUS [Suspect]
     Active Substance: OCRELIZUMAB
     Dosage: INFUSION, SOLUTION
     Route: 042
     Dates: start: 20191010
  6. OCREVUS [Suspect]
     Active Substance: OCRELIZUMAB
     Dosage: 6TH INFUSION
     Route: 042
     Dates: start: 20200428
  7. OCREVUS [Suspect]
     Active Substance: OCRELIZUMAB
     Dosage: INFUSION, SOLUTION
     Route: 042
  8. LEVOTHYROXINE SODIUM [Suspect]
     Active Substance: LEVOTHYROXINE SODIUM
     Dosage: 25 UG, 1X/DAY
     Route: 065
  9. LEVOTHYROXINE SODIUM [Suspect]
     Active Substance: LEVOTHYROXINE SODIUM
     Dosage: 12.5 UG, 1X/DAY
     Route: 065
  10. BISOPROLOL [Concomitant]
     Active Substance: BISOPROLOL
     Indication: Product used for unknown indication
     Dosage: 5 MG, 1X/DAY
  11. BISOPROLOL [Concomitant]
     Active Substance: BISOPROLOL
     Dosage: 5 MG, QD
     Route: 065
  12. ENALAPRIL [Concomitant]
     Active Substance: ENALAPRIL
     Indication: Product used for unknown indication
     Dosage: DAYS
  13. ENALAPRIL [Concomitant]
     Active Substance: ENALAPRIL
     Dosage: 10 MG, 1X/DAY
     Route: 065
  14. ENALAPRIL [Concomitant]
     Active Substance: ENALAPRIL
     Dosage: 20 MG, 1X/DAY
     Route: 065
  15. ENALAPRIL [Concomitant]
     Active Substance: ENALAPRIL
     Dosage: 10 MG, QD
     Route: 065
  16. ENALAPRIL [Concomitant]
     Active Substance: ENALAPRIL
     Dosage: FREQ:.5 D;20 MG, BID
     Route: 065
  17. ENALAPRIL [Concomitant]
     Active Substance: ENALAPRIL
     Dosage: 30 MG
     Route: 065
  18. ASPIRIN [Concomitant]
     Active Substance: ASPIRIN
     Indication: Product used for unknown indication
     Dosage: 100 MG, 1X/DAY
  19. ASPIRIN [Concomitant]
     Active Substance: ASPIRIN
     Dosage: 100 MG, QD
     Route: 065
  20. TROSPIUM CHLORIDE [Concomitant]
     Active Substance: TROSPIUM CHLORIDE
     Dosage: 30 MG, 1X/DAY
  21. TROSPIUM CHLORIDE [Concomitant]
     Active Substance: TROSPIUM CHLORIDE
     Dosage: 15 MG, 0.5/DAILY
  22. SIMVASTATIN [Concomitant]
     Active Substance: SIMVASTATIN
     Indication: Product used for unknown indication
     Dosage: 20 MG, 1X/DAY
  23. SIMVASTATIN [Concomitant]
     Active Substance: SIMVASTATIN
     Dosage: 20 MG, QD
     Route: 065
  24. RESTAXIL [Concomitant]
     Dosage: UNK (5-8 GTT, 3XDAY)
     Route: 065
  25. METFORMIN HYDROCHLORIDE [Concomitant]
     Active Substance: METFORMIN HYDROCHLORIDE
     Dosage: 1000 MG, DAILY (1-0-1)
  26. METFORMIN HYDROCHLORIDE [Concomitant]
     Active Substance: METFORMIN HYDROCHLORIDE
     Dosage: 500 MG, 2X/DAY, 1-0-1
  27. AMLODIPINE [Concomitant]
     Active Substance: AMLODIPINE BESYLATE
     Dosage: 5 MG
  28. AMLODIPINE [Concomitant]
     Active Substance: AMLODIPINE BESYLATE
     Indication: Product used for unknown indication
     Dosage: 5 MG, QD
     Route: 065
  29. SPASMEX (GERMANY) [Concomitant]
     Indication: Product used for unknown indication
     Dosage: FREQ:.5 D;15 MG, BID
     Route: 065

REACTIONS (53)
  - Multiple sclerosis [Not Recovered/Not Resolved]
  - Drug dependence [Recovered/Resolved]
  - Neuropathy peripheral [Not Recovered/Not Resolved]
  - Accidental overdose [Unknown]
  - Feeling hot [Not Recovered/Not Resolved]
  - Drug ineffective [Unknown]
  - Dysmenorrhoea [Recovered/Resolved]
  - Micturition urgency [Recovered/Resolved]
  - Condition aggravated [Recovered/Resolved]
  - Discomfort [Recovered/Resolved]
  - Crying [Recovered/Resolved]
  - Hypertension [Not Recovered/Not Resolved]
  - Thyroid mass [Unknown]
  - Fatigue [Recovered/Resolved]
  - Palpitations [Recovered/Resolved]
  - Muscle spasms [Recovered/Resolved]
  - Toothache [Recovered/Resolved]
  - Blood pressure increased [Not Recovered/Not Resolved]
  - Hypoaesthesia [Not Recovered/Not Resolved]
  - Tremor [Not Recovered/Not Resolved]
  - Panic attack [Recovered/Resolved]
  - Anxiety [Recovered/Resolved]
  - Choking sensation [Recovered/Resolved]
  - Dysaesthesia [Not Recovered/Not Resolved]
  - Walking disability [Recovered/Resolved]
  - Burning sensation [Not Recovered/Not Resolved]
  - Headache [Recovered/Resolved]
  - Fear of falling [Recovered/Resolved]
  - Dizziness [Recovered/Resolved]
  - Nausea [Recovered/Resolved]
  - Exercise tolerance decreased [Recovered/Resolved]
  - Nasopharyngitis [Recovered/Resolved]
  - Initial insomnia [Recovered/Resolved]
  - Inflammatory marker increased [Recovered/Resolved]
  - Flushing [Recovered/Resolved]
  - Back pain [Recovering/Resolving]
  - Nasopharyngitis [Recovering/Resolving]
  - Vision blurred [Recovered/Resolved]
  - Cardiac disorder [Unknown]
  - Seasonal allergy [Unknown]
  - Bladder dysfunction [Recovered/Resolved]
  - Musculoskeletal stiffness [Not Recovered/Not Resolved]
  - Muscle tightness [Recovering/Resolving]
  - Malaise [Recovered/Resolved]
  - Muscle spasticity [Not Recovered/Not Resolved]
  - Neuralgia [Not Recovered/Not Resolved]
  - Abdominal discomfort [Recovered/Resolved]
  - Gait disturbance [Not Recovered/Not Resolved]
  - Cystitis noninfective [Recovered/Resolved]
  - Pain [Recovered/Resolved]
  - Feeling abnormal [Recovered/Resolved]
  - Arthralgia [Not Recovered/Not Resolved]
  - Facial pain [Not Recovered/Not Resolved]

NARRATIVE: CASE EVENT DATE: 20180101
